FAERS Safety Report 14182089 (Version 1)
Quarter: 2017Q4

REPORT INFORMATION
  Report Type: Spontaneous
  Country: US (occurrence: US)
  Receive Date: 20171113
  Receipt Date: 20171113
  Transmission Date: 20180321
  Serious: No
  Sender: FDA-Public Use
  Company Number: PHEH2017US035594

PATIENT
  Age: 87 Year
  Sex: Male
  Weight: 86.18 kg

DRUGS (3)
  1. LORATADINE TABLETS [Suspect]
     Active Substance: LORATADINE
     Indication: PRURITUS
  2. LORATADINE TABLETS [Suspect]
     Active Substance: LORATADINE
     Indication: LACRIMATION INCREASED
     Dosage: 1 DF, UNK
     Route: 065
     Dates: start: 20171001
  3. LORATADINE TABLETS [Suspect]
     Active Substance: LORATADINE
     Indication: SNEEZING

REACTIONS (1)
  - Urine output increased [Unknown]
